FAERS Safety Report 7561570-8 (Version None)
Quarter: 2011Q2

REPORT INFORMATION
  Report Type: 
  Country: None (occurrence: None)
  Receive Date: 20110621
  Receipt Date: 20100503
  Transmission Date: 20111010
  Serious: No
  Sender: FDA-Public Use
  Company Number: US-ASTRAZENECA-2010SE20077

PATIENT
  Age: 62 Year
  Sex: Male

DRUGS (7)
  1. PULMICORT [Suspect]
     Route: 055
  2. LUMIGAN [Concomitant]
  3. XANAX [Concomitant]
  4. ALL OTHER THERAPEUTIC PRODUCTS [Concomitant]
  5. XOPENEX [Suspect]
     Indication: CHRONIC OBSTRUCTIVE PULMONARY DISEASE
     Dosage: 1.25 MG/3ML AS REQUIRED
     Route: 055
     Dates: end: 20100201
  6. SYMBICORT [Suspect]
     Route: 055
  7. NASACORT [Concomitant]

REACTIONS (3)
  - TREMOR [None]
  - INSOMNIA [None]
  - ABDOMINAL DISCOMFORT [None]
